FAERS Safety Report 13269248 (Version 2)
Quarter: 2017Q1

REPORT INFORMATION
  Report Type: Spontaneous
  Country: US (occurrence: US)
  Receive Date: 20170224
  Receipt Date: 20170228
  Transmission Date: 20170428
  Serious: Yes (Hospitalization, Other)
  Sender: FDA-Public Use
  Company Number: US-SA-2017SA027227

PATIENT
  Age: 61 Year
  Sex: Male

DRUGS (15)
  1. HEPARIN [Suspect]
     Active Substance: HEPARIN SODIUM
     Indication: PERIPHERAL ARTERY OCCLUSION
     Dosage: HEPARIN BOLUS DOSE:60 UNIT(S)/KILOGRAM BODYWEIGHT
     Route: 065
  2. HEPARIN [Suspect]
     Active Substance: HEPARIN SODIUM
     Indication: INTERMITTENT CLAUDICATION
     Dosage: BOLUS DOSE
     Route: 042
  3. HEPARIN [Suspect]
     Active Substance: HEPARIN SODIUM
     Indication: PERIPHERAL ARTERY OCCLUSION
     Dosage: BOLUS DOSE
     Route: 042
  4. CLOPIDOGREL BISULFATE. [Suspect]
     Active Substance: CLOPIDOGREL BISULFATE
     Indication: ANTIPLATELET THERAPY
     Route: 065
  5. ASPIRIN. [Concomitant]
     Active Substance: ASPIRIN
  6. HEPARIN [Suspect]
     Active Substance: HEPARIN SODIUM
     Indication: ANTIPLATELET THERAPY
     Dosage: HEPARIN BOLUS DOSE:60 UNIT(S)/KILOGRAM BODYWEIGHT
     Route: 065
  7. HEPARIN [Suspect]
     Active Substance: HEPARIN SODIUM
     Indication: INTERMITTENT CLAUDICATION
     Dosage: HEPARIN BOLUS DOSE:60 UNIT(S)/KILOGRAM BODYWEIGHT
     Route: 065
  8. WARFARIN [Concomitant]
     Active Substance: WARFARIN
  9. HEPARIN [Suspect]
     Active Substance: HEPARIN SODIUM
     Indication: ANTIPLATELET THERAPY
     Dosage: HEPARIN BONDED STENT GRAFT
     Route: 065
  10. HEPARIN [Suspect]
     Active Substance: HEPARIN SODIUM
     Indication: ANTIPLATELET THERAPY
     Dosage: BOLUS DOSE
     Route: 042
  11. HEPARIN [Suspect]
     Active Substance: HEPARIN SODIUM
     Indication: ANTIPLATELET THERAPY
     Dosage: 2 HEPARIN BONDED STENT GRAFTS
     Route: 065
  12. HEPARIN [Suspect]
     Active Substance: HEPARIN SODIUM
     Indication: PERIPHERAL ARTERY OCCLUSION
     Dosage: 2 HEPARIN BONDED STENT GRAFTS
     Route: 065
  13. HEPARIN [Suspect]
     Active Substance: HEPARIN SODIUM
     Indication: INTERMITTENT CLAUDICATION
     Dosage: 2 HEPARIN BONDED STENT GRAFTS
     Route: 065
  14. HEPARIN [Suspect]
     Active Substance: HEPARIN SODIUM
     Indication: INTERMITTENT CLAUDICATION
     Dosage: HEPARIN BONDED STENT GRAFT
     Route: 065
  15. HEPARIN [Suspect]
     Active Substance: HEPARIN SODIUM
     Indication: PERIPHERAL ARTERY OCCLUSION
     Dosage: HEPARIN BONDED STENT GRAFT
     Route: 065

REACTIONS (5)
  - Heparin-induced thrombocytopenia [Recovered/Resolved]
  - Vascular stent thrombosis [Recovered/Resolved]
  - Rash [Unknown]
  - Acute myocardial infarction [Recovered/Resolved]
  - Peripheral ischaemia [Recovered/Resolved]
